FAERS Safety Report 10264799 (Version 1)
Quarter: 2014Q2

REPORT INFORMATION
  Report Type: Spontaneous
  Country: BR (occurrence: BR)
  Receive Date: 20140627
  Receipt Date: 20140627
  Transmission Date: 20141212
  Serious: Yes (Death, Life-Threatening, Hospitalization)
  Sender: FDA-Public Use
  Company Number: BR-B.I. PHARMACEUTICALS,INC./RIDGEFIELD-2014-BI-28856BR

PATIENT
  Age: 77 Year
  Sex: Male
  Weight: 76 kg

DRUGS (3)
  1. TRAYENTA [Suspect]
     Indication: DIABETES MELLITUS
     Dosage: 5 MG
     Route: 048
     Dates: start: 2013
  2. SIMVASTATINA [Concomitant]
     Indication: BLOOD CHOLESTEROL INCREASED
     Route: 048
  3. GLIMEPIRIDE [Concomitant]
     Indication: DIABETES MELLITUS
     Route: 048

REACTIONS (3)
  - Cardiac failure [Fatal]
  - Pulmonary oedema [Fatal]
  - Dyspnoea [Not Recovered/Not Resolved]
